FAERS Safety Report 22191958 (Version 1)
Quarter: 2023Q2

REPORT INFORMATION
  Report Type: Report from Study
  Country: CN (occurrence: CN)
  Receive Date: 20230410
  Receipt Date: 20230410
  Transmission Date: 20230722
  Serious: Yes (Other)
  Sender: FDA-Public Use
  Company Number: CN-PFIZER INC-202300137198

PATIENT
  Age: 35 Year
  Sex: Male

DRUGS (5)
  1. VORICONAZOLE [Suspect]
     Active Substance: VORICONAZOLE
     Indication: Candida infection
     Dosage: UNK
  2. LINEZOLID [Concomitant]
     Active Substance: LINEZOLID
     Indication: Candida infection
     Dosage: UNK
  3. IMIPENEM [Concomitant]
     Active Substance: IMIPENEM
     Indication: Candida infection
     Dosage: UNK
  4. MICAFUNGIN [Concomitant]
     Active Substance: MICAFUNGIN SODIUM
     Indication: Candida infection
     Dosage: UNK
  5. POSACONAZOLE [Concomitant]
     Active Substance: POSACONAZOLE
     Indication: Candida infection
     Dosage: UNK

REACTIONS (1)
  - Drug resistance [Unknown]
